FAERS Safety Report 7355297-5 (Version None)
Quarter: 2011Q1

REPORT INFORMATION
  Report Type: 
  Country: None (occurrence: None)
  Receive Date: 20110316
  Receipt Date: 20110311
  Transmission Date: 20110831
  Serious: Yes (Other)
  Sender: FDA-Public Use
  Company Number: US-PFIZER INC-2011054733

PATIENT
  Sex: Female
  Weight: 68.027 kg

DRUGS (9)
  1. FOLIC ACID [Concomitant]
     Dosage: UNK
  2. MULTI-VITAMINS [Concomitant]
     Dosage: UNK
  3. PREDNISOLONE [Suspect]
     Dosage: UNK
     Route: 048
  4. DIGOXIN [Concomitant]
     Dosage: 1.25 MG, 1X/DAY
     Route: 048
  5. ZOLOFT [Suspect]
     Indication: DEPRESSION
     Dosage: 50 MG, 1X/DAY
     Route: 048
     Dates: start: 20110201
  6. LEVOTHYROXINE [Concomitant]
     Indication: THYROID DISORDER
     Dosage: 50 MG, 1X/DAY
     Route: 048
  7. LIPITOR [Concomitant]
     Dosage: 10 MG, 1X/DAY
     Route: 048
  8. COUMADIN [Concomitant]
     Dosage: 2 MG, 1X/DAY
     Route: 048
  9. CLONAZEPAM [Concomitant]
     Dosage: UNK

REACTIONS (2)
  - FLUID RETENTION [None]
  - BURNING SENSATION [None]
